FAERS Safety Report 5257162-6 (Version None)
Quarter: 2007Q1

REPORT INFORMATION
  Report Type: 
  Country: None (occurrence: None)
  Receive Date: 20061220
  Receipt Date: 20060814
  Transmission Date: 20070707
  Serious: No
  Sender: FDA-Public Use
  Company Number: 2006RL000294

PATIENT
  Age: 76 Year
  Sex: Female
  Weight: 78.4723 kg

DRUGS (6)
  1. OMACOR [Suspect]
     Indication: BLOOD TRIGLYCERIDES INCREASED
     Dosage: 4 GM; QD; PO
     Route: 048
     Dates: start: 20060502, end: 20060802
  2. DYAZIDE [Concomitant]
  3. SERAX [Concomitant]
  4. ASPIRIN [Concomitant]
  5. MECLIZINE [Concomitant]
  6. POTASSIUM CHLORIDE [Concomitant]

REACTIONS (3)
  - BLOOD TRIGLYCERIDES INCREASED [None]
  - DRUG EFFECT DECREASED [None]
  - LIPIDS ABNORMAL [None]
